FAERS Safety Report 12847437 (Version 2)
Quarter: 2016Q4

REPORT INFORMATION
  Report Type: Spontaneous
  Country: ZA (occurrence: ZA)
  Receive Date: 20161014
  Receipt Date: 20161026
  Transmission Date: 20170207
  Serious: Yes (Other)
  Sender: FDA-Public Use
  Company Number: ZA-PFIZER INC-2016473092

PATIENT
  Sex: Female

DRUGS (2)
  1. ASPAVOR [Suspect]
     Active Substance: ATORVASTATIN
     Dosage: 60 MG, 2X/DAY
  2. ASPAVOR [Suspect]
     Active Substance: ATORVASTATIN
     Dosage: UNK MG, UNK

REACTIONS (1)
  - Colitis ulcerative [Unknown]
